FAERS Safety Report 9818927 (Version 2)
Quarter: 2014Q1

REPORT INFORMATION
  Report Type: Spontaneous
  Country: ZA (occurrence: ZA)
  Receive Date: 20140115
  Receipt Date: 20140210
  Transmission Date: 20141002
  Serious: Yes (Death, Hospitalization)
  Sender: FDA-Public Use
  Company Number: ZA-PFIZER INC-2014006225

PATIENT
  Age: 12 Year
  Sex: Male

DRUGS (7)
  1. DOXORUBICIN HCL [Suspect]
     Indication: ALVEOLAR RHABDOMYOSARCOMA
     Dosage: UNK
     Route: 042
     Dates: start: 19740724
  2. DOXORUBICIN HCL [Interacting]
     Dosage: UNK
     Route: 042
     Dates: start: 197409
  3. DOXORUBICIN HCL [Interacting]
     Dosage: UNK
     Route: 042
     Dates: start: 197411
  4. DOXORUBICIN HCL [Interacting]
     Dosage: UNK
     Route: 042
     Dates: start: 197502
  5. CYCLOPHOSPHAMIDE [Concomitant]
     Indication: ALVEOLAR RHABDOMYOSARCOMA
  6. ACTINOMYCIN D [Concomitant]
     Indication: ALVEOLAR RHABDOMYOSARCOMA
  7. VINCRISTINE [Concomitant]
     Indication: ALVEOLAR RHABDOMYOSARCOMA

REACTIONS (2)
  - Radiation interaction [Fatal]
  - Cardiotoxicity [Fatal]
